FAERS Safety Report 9816129 (Version 2)
Quarter: 2014Q1

REPORT INFORMATION
  Report Type: Spontaneous
  Country: IT (occurrence: IT)
  Receive Date: 20140114
  Receipt Date: 20140314
  Transmission Date: 20141002
  Serious: Yes (Hospitalization)
  Sender: FDA-Public Use
  Company Number: IT-PFIZER INC-2014007597

PATIENT
  Age: 35 Year
  Sex: Female

DRUGS (1)
  1. XANAX [Suspect]
     Dosage: 15 ML, SINGLE
     Route: 048
     Dates: start: 20131119, end: 20131119

REACTIONS (2)
  - Drug abuse [Recovering/Resolving]
  - Somnolence [Recovering/Resolving]
